FAERS Safety Report 14804409 (Version 12)
Quarter: 2019Q2

REPORT INFORMATION
  Report Type: Spontaneous
  Country: GB (occurrence: GB)
  Receive Date: 20180425
  Receipt Date: 20190528
  Transmission Date: 20190711
  Serious: Yes (Life-Threatening, Hospitalization, Other)
  Sender: FDA-Public Use
  Company Number: GB-AUROBINDO-AUR-APL-2018-021470

PATIENT

DRUGS (20)
  1. SALBUTAMOL [Suspect]
     Active Substance: ALBUTEROL
     Dosage: 0.5 MILLIGRAM
     Route: 042
  2. KETAMINE [Suspect]
     Active Substance: KETAMINE
     Indication: ASTHMA
     Dosage: INCREASED TO 45 MICROG/KG/MIN
     Route: 042
  3. MAGNESIUM SULFATE. [Suspect]
     Active Substance: MAGNESIUM SULFATE
     Indication: ASTHMA
     Dosage: 2 GRAM, ONCE A DAY
     Route: 042
  4. IPRATROPIUM BROMIDE. [Suspect]
     Active Substance: IPRATROPIUM BROMIDE
     Indication: ASTHMA
     Dosage: 0.5 MG, UNK (NEBULISATION)
     Route: 065
  5. PREDNISOLONE. [Suspect]
     Active Substance: PREDNISOLONE
     Indication: ASTHMA
     Dosage: 30 MILLIGRAM, ONCE A DAY
     Route: 048
  6. MONTELUKAST [Suspect]
     Active Substance: MONTELUKAST SODIUM
     Indication: ASTHMA
     Dosage: UNK
     Route: 048
  7. SEVOFLURANE. [Suspect]
     Active Substance: SEVOFLURANE
     Indication: ASTHMA
     Dosage: DAILY DOSE-8 %
     Route: 055
  8. EPINEPHRINE. [Suspect]
     Active Substance: EPINEPHRINE
     Indication: ASTHMA
     Dosage: 350 MICROGRAM, ONCE A DAY, (DILUTED IN SMALL INCREMENTS)
     Route: 065
  9. THEOPHYLLINE [Suspect]
     Active Substance: THEOPHYLLINE ANHYDROUS
     Indication: ASTHMA
     Dosage: UNK
     Route: 065
  10. MONTELUKAST [Concomitant]
     Active Substance: MONTELUKAST SODIUM
     Indication: ASTHMA
     Dosage: UNK
     Route: 065
  11. MAGNESIUM SULFATE. [Concomitant]
     Active Substance: MAGNESIUM SULFATE
     Indication: ASTHMA
     Dosage: UNK
     Route: 065
  12. SALBUTAMOL [Suspect]
     Active Substance: ALBUTEROL
     Dosage: 250 MICROGRAM, 2 BOLUSES
     Route: 040
  13. SALBUTAMOL [Suspect]
     Active Substance: ALBUTEROL
     Dosage: 15 MILLIGRAM (VIA NEBULIZATION IN REPEATED DOSES)
     Route: 042
  14. ATROVENT [Suspect]
     Active Substance: IPRATROPIUM BROMIDE
     Dosage: UNK
     Route: 065
  15. SALBUTAMOL [Suspect]
     Active Substance: ALBUTEROL
     Indication: ASTHMA
     Dosage: 12.3 MILLIGRAM (FORM-INTRAVENOUS INFUSION)
     Route: 042
  16. SALBUTAMOL [Suspect]
     Active Substance: ALBUTEROL
     Dosage: 2 BOLUSES
     Route: 040
  17. ATROVENT [Suspect]
     Active Substance: IPRATROPIUM BROMIDE
     Indication: ASTHMA
     Dosage: 0.5 MILLIGRAM, ONCE A DAY, 0.5 MILLIGRAM, NEBULISATION
     Route: 065
  18. PREDNISOLONE. [Concomitant]
     Active Substance: PREDNISOLONE
     Indication: ASTHMA
     Dosage: 30 MILLIGRAM, UNK
     Route: 065
  19. HYDROCORTISONE. [Suspect]
     Active Substance: HYDROCORTISONE
     Indication: ASTHMA
     Dosage: 100 MILLIGRAM, ONCE A DAY
     Route: 042
  20. PREDNISOLONE. [Suspect]
     Active Substance: PREDNISOLONE
     Dosage: UNK
     Route: 048

REACTIONS (20)
  - Status asthmaticus [Recovered/Resolved]
  - Oxygen saturation decreased [Recovered/Resolved]
  - Acute respiratory failure [Recovered/Resolved]
  - Lung hyperinflation [Recovered/Resolved]
  - Respiratory rate increased [Recovered/Resolved]
  - PCO2 increased [Recovering/Resolving]
  - Blood lactic acid increased [Recovering/Resolving]
  - Asthma [Recovered/Resolved]
  - Bronchospasm [Recovered/Resolved]
  - Airway peak pressure increased [Recovering/Resolving]
  - Wheezing [Recovered/Resolved]
  - Blood bicarbonate decreased [Recovering/Resolving]
  - Dyspnoea [Recovering/Resolving]
  - Drug ineffective [Recovering/Resolving]
  - PO2 decreased [Recovering/Resolving]
  - Hypercapnia [Recovering/Resolving]
  - Off label use [Unknown]
  - Cyanosis [Recovering/Resolving]
  - Respiratory acidosis [Recovering/Resolving]
  - Blood pH decreased [Recovering/Resolving]
